FAERS Safety Report 6878627-7 (Version None)
Quarter: 2010Q3

REPORT INFORMATION
  Report Type: 
  Country: None (occurrence: None)
  Receive Date: 20100728
  Receipt Date: 20100714
  Transmission Date: 20110219
  Serious: Yes (Hospitalization)
  Sender: FDA-Public Use
  Company Number: A0866986A

PATIENT
  Age: 65 Year
  Sex: Male
  Weight: 129.5 kg

DRUGS (6)
  1. AVANDIA [Suspect]
     Dosage: 4MG TWICE PER DAY
     Route: 048
     Dates: start: 20061106, end: 20070731
  2. JANUVIA [Concomitant]
  3. AMLODIPINE [Concomitant]
  4. LIPITOR [Concomitant]
  5. GLYBURIDE AND METFORMIN HYDROCHLORIDE [Concomitant]
  6. LISINOPRIL [Concomitant]

REACTIONS (2)
  - CARDIAC FAILURE CONGESTIVE [None]
  - CEREBROVASCULAR ACCIDENT [None]
